FAERS Safety Report 25595873 (Version 1)
Quarter: 2025Q3

REPORT INFORMATION
  Report Type: Spontaneous
  Country: US (occurrence: None)
  Receive Date: 20250722
  Receipt Date: 20250722
  Transmission Date: 20251020
  Serious: No
  Sender: FDA-CTU
  Company Number: None

PATIENT
  Age: 16 Year
  Sex: Male

DRUGS (4)
  1. STELARA [Suspect]
     Active Substance: USTEKINUMAB
     Indication: Crohn^s disease
     Dosage: FREQUENCY : MONTHLY;?
     Route: 058
     Dates: start: 20250604
  2. RINVOQ [Suspect]
     Active Substance: UPADACITINIB
  3. RINVOQ [Concomitant]
     Active Substance: UPADACITINIB
     Dates: start: 20250120
  4. budesonide ER 9mg tablet [Concomitant]
     Dates: start: 20250312

REACTIONS (2)
  - Weight decreased [None]
  - Fatigue [None]

NARRATIVE: CASE EVENT DATE: 20250701
